FAERS Safety Report 8282097-4 (Version None)
Quarter: 2012Q2

REPORT INFORMATION
  Report Type: 
  Country: None (occurrence: None)
  Receive Date: 20120413
  Receipt Date: 20120402
  Transmission Date: 20120825
  Serious: Yes (Other)
  Sender: FDA-Public Use
  Company Number: US-PFIZER INC-2011239132

PATIENT
  Age: 37 Year
  Sex: Male

DRUGS (6)
  1. AMIODARONE HCL [Suspect]
     Indication: ATRIAL FIBRILLATION
     Dosage: 200 MG, 2X/DAY
     Route: 065
  2. ALENDRONIC ACID [Suspect]
     Indication: OSTEOPOROSIS
     Dosage: 70 MG, WEEKLY
  3. METOPROLOL [Concomitant]
     Indication: HYPERTENSION
     Dosage: UNK
  4. PANTOPRAZOLE [Concomitant]
     Indication: GASTROOESOPHAGEAL REFLUX DISEASE
     Dosage: UNK
  5. PREDNISONE [Concomitant]
     Indication: SARCOIDOSIS
     Dosage: 30 MG ONCE A DAY
  6. ALENDRONATE SODIUM [Concomitant]
     Indication: OSTEOPOROSIS
     Dosage: UNK

REACTIONS (8)
  - PAPILLOEDEMA [None]
  - OPTIC DISC DISORDER [None]
  - OPTIC NEUROPATHY [None]
  - HALO VISION [None]
  - VISION BLURRED [None]
  - VISUAL FIELD DEFECT [None]
  - INTRAOCULAR PRESSURE INCREASED [None]
  - CORNEAL DEPOSITS [None]
